FAERS Safety Report 14404256 (Version 2)
Quarter: 2018Q4

REPORT INFORMATION
  Report Type: Spontaneous
  Country: US (occurrence: US)
  Receive Date: 20180117
  Receipt Date: 20181001
  Transmission Date: 20190204
  Serious: Yes (Hospitalization, Other)
  Sender: FDA-Public Use
  Company Number: US-DSJP-DSU-2017-154106

PATIENT

DRUGS (2)
  1. BENICAR [Suspect]
     Active Substance: OLMESARTAN MEDOXOMIL
     Indication: HYPERTENSION
     Dosage: 20 MG, UNK
     Route: 048
     Dates: start: 20100825, end: 20170609
  2. BENICAR [Suspect]
     Active Substance: OLMESARTAN MEDOXOMIL
     Dosage: 40 MG, UNK
     Dates: start: 20100825, end: 20170628

REACTIONS (7)
  - Rectal haemorrhage [Recovered/Resolved]
  - Diverticulum intestinal [Unknown]
  - Sprue-like enteropathy [Recovered/Resolved]
  - Gastrointestinal haemorrhage [Unknown]
  - Haemorrhoids [Unknown]
  - Duodenal ulcer [Unknown]
  - Large intestine polyp [Recovered/Resolved]

NARRATIVE: CASE EVENT DATE: 20101115
